FAERS Safety Report 12156064 (Version 1)
Quarter: 2016Q1

REPORT INFORMATION
  Report Type: Spontaneous
  Country: CH (occurrence: CH)
  Receive Date: 20160307
  Receipt Date: 20160307
  Transmission Date: 20160526
  Serious: Yes (Hospitalization)
  Sender: FDA-Public Use
  Company Number: CH-TEVA-638772ISR

PATIENT
  Age: 75 Year
  Sex: Female

DRUGS (16)
  1. IPRAMOL [Suspect]
     Active Substance: ALBUTEROL SULFATE\IPRATROPIUM BROMIDE
     Dosage: 3 DOSAGE FORMS DAILY;
     Route: 055
     Dates: start: 20160108, end: 20160125
  2. NEXIUM [Suspect]
     Active Substance: ESOMEPRAZOLE MAGNESIUM
     Dosage: 40 MILLIGRAM DAILY;
     Route: 048
     Dates: start: 20151218, end: 20160125
  3. VALTREX [Suspect]
     Active Substance: VALACYCLOVIR HYDROCHLORIDE
     Dosage: 500 MILLIGRAM DAILY;
     Route: 048
     Dates: start: 20151218, end: 20160125
  4. ARANESP [Suspect]
     Active Substance: DARBEPOETIN ALFA
     Route: 058
     Dates: start: 20151228, end: 20160125
  5. CALCIPARINE [Suspect]
     Active Substance: HEPARIN CALCIUM
     Dosage: 10000 IU (INTERNATIONAL UNIT) DAILY;
     Route: 058
     Dates: start: 20151224, end: 20160125
  6. TORASEMID [Suspect]
     Active Substance: TORSEMIDE
     Route: 048
     Dates: start: 20151231, end: 20160118
  7. VELCADE [Suspect]
     Active Substance: BORTEZOMIB
     Route: 041
     Dates: start: 20160108, end: 20160122
  8. BACTRIM [Suspect]
     Active Substance: SULFAMETHOXAZOLE\TRIMETHOPRIM
     Route: 048
     Dates: start: 20151224, end: 20160108
  9. VANCOCIN [Suspect]
     Active Substance: VANCOMYCIN HYDROCHLORIDE
     Dosage: .5 GRAM DAILY;
     Route: 041
     Dates: start: 20160108, end: 20160119
  10. ALKERAN [Suspect]
     Active Substance: MELPHALAN
     Dosage: 10 MILLIGRAM DAILY;
     Route: 048
     Dates: start: 201601, end: 20160123
  11. LASIX [Suspect]
     Active Substance: FUROSEMIDE
     Dosage: 80 MILLIGRAM DAILY;
     Route: 048
     Dates: start: 20151217, end: 20160125
  12. METOLAZONE. [Suspect]
     Active Substance: METOLAZONE
     Dosage: 5 MILLIGRAM DAILY;
     Route: 048
     Dates: start: 201601, end: 20160124
  13. TAMIFLU [Concomitant]
     Active Substance: OSELTAMIVIR PHOSPHATE
     Dosage: 30 MILLIGRAM DAILY;
     Route: 048
     Dates: start: 20160112, end: 20160116
  14. DAFALGAN [Concomitant]
     Active Substance: ACETAMINOPHEN
     Route: 048
  15. PIPERACILINA TAZOBACTAM [Concomitant]
     Dosage: 9 GRAM DAILY;
     Route: 041
     Dates: start: 20160108, end: 20160115
  16. BACTRIM [Suspect]
     Active Substance: SULFAMETHOXAZOLE\TRIMETHOPRIM
     Dosage: 1 DOSAGE FORMS DAILY;
     Route: 048
     Dates: start: 20160109, end: 20160125

REACTIONS (1)
  - Stevens-Johnson syndrome [Recovering/Resolving]

NARRATIVE: CASE EVENT DATE: 20160116
